FAERS Safety Report 24530249 (Version 1)
Quarter: 2024Q4

REPORT INFORMATION
  Report Type: Report from Study
  Country: IE (occurrence: IE)
  Receive Date: 20241021
  Receipt Date: 20241021
  Transmission Date: 20250115
  Serious: Yes (Other)
  Sender: BAXTER
  Company Number: IE-BAXTER-2024BAX025335

PATIENT
  Age: 50 Year
  Sex: Male

DRUGS (10)
  1. SODIUM CHLORIDE [Suspect]
     Active Substance: SODIUM CHLORIDE
     Dosage: UNK
     Route: 042
     Dates: start: 20240920, end: 20240924
  2. WATER FOR INJECTION [Suspect]
     Active Substance: WATER
     Dosage: UNK
     Route: 042
     Dates: start: 20240920, end: 20240924
  3. FLUCLOXACILLIN [Suspect]
     Active Substance: FLUCLOXACILLIN
     Indication: Osteomyelitis
     Dosage: (FLUCLOXACILLIN CI) 8 G AT AN UNSPECIFIED FREQUENCY
     Route: 042
     Dates: start: 20240920, end: 20240924
  4. CITRATE [Suspect]
     Active Substance: CITRIC ACID MONOHYDRATE
     Dosage: UNK
     Route: 042
     Dates: start: 20240920, end: 20240924
  5. FLUCLOXACILLIN [Suspect]
     Active Substance: FLUCLOXACILLIN
     Indication: Arthritis infective
     Dosage: UNK
     Route: 042
     Dates: start: 20240920, end: 20240924
  6. UNSPECIFIED INGREDIENT [Suspect]
     Active Substance: UNSPECIFIED INGREDIENT
     Route: 065
  7. OMEPRAZOLE [Concomitant]
     Active Substance: OMEPRAZOLE
     Route: 065
  8. SENNA [Concomitant]
     Active Substance: SENNA LEAF\SENNOSIDES\SENNOSIDES A AND B
     Route: 065
  9. MOVICOL [Concomitant]
     Active Substance: POLYETHYLENE GLYCOL 3350\POTASSIUM CHLORIDE\SODIUM BICARBONATE\SODIUM CHLORIDE
     Route: 065
  10. PHOS [Concomitant]
     Dosage: (SANDOZ PHOS)
     Route: 065

REACTIONS (5)
  - Venous thrombosis limb [Recovered/Resolved]
  - Deep vein thrombosis [Recovered/Resolved]
  - Axillary pain [Unknown]
  - Pain in extremity [Unknown]
  - Underdose [Unknown]

NARRATIVE: CASE EVENT DATE: 20240922
